FAERS Safety Report 10845998 (Version 3)
Quarter: 2016Q1

REPORT INFORMATION
  Report Type: Report from Study
  Country: US (occurrence: US)
  Receive Date: 20150220
  Receipt Date: 20160201
  Transmission Date: 20160525
  Serious: Yes (Other)
  Sender: FDA-Public Use
  Company Number: US-ABBVIE-15K-163-1328827-00

PATIENT
  Sex: Female
  Weight: 49.49 kg

DRUGS (6)
  1. HUMIRA [Suspect]
     Active Substance: ADALIMUMAB
     Indication: CROHN^S DISEASE
     Route: 058
     Dates: start: 20140330, end: 20140330
  2. HUMIRA [Suspect]
     Active Substance: ADALIMUMAB
     Route: 058
     Dates: start: 201404
  3. HUMIRA [Suspect]
     Active Substance: ADALIMUMAB
     Route: 058
     Dates: start: 2014, end: 2014
  4. PERCOCET [Concomitant]
     Active Substance: ACETAMINOPHEN\OXYCODONE HYDROCHLORIDE
     Indication: PRODUCT USED FOR UNKNOWN INDICATION
  5. FOLIC ACID. [Concomitant]
     Active Substance: FOLIC ACID
     Indication: PRODUCT USED FOR UNKNOWN INDICATION
  6. METHOTREXATE [Concomitant]
     Active Substance: METHOTREXATE
     Indication: CROHN^S DISEASE
     Route: 048
     Dates: start: 201204

REACTIONS (12)
  - Drug ineffective [Not Recovered/Not Resolved]
  - Cystocele [Unknown]
  - Abdominal adhesions [Unknown]
  - Pseudopolyp [Unknown]
  - Intestinal ulcer [Not Recovered/Not Resolved]
  - Malnutrition [Unknown]
  - Mucosal hyperaemia [Unknown]
  - Gastrointestinal wall thickening [Unknown]
  - Small intestinal obstruction [Unknown]
  - Crohn^s disease [Recovering/Resolving]
  - Intestinal stenosis [Not Recovered/Not Resolved]
  - Short-bowel syndrome [Unknown]

NARRATIVE: CASE EVENT DATE: 2014
